FAERS Safety Report 12182884 (Version 1)
Quarter: 2016Q1

REPORT INFORMATION
  Report Type: Spontaneous
  Country: US (occurrence: None)
  Receive Date: 20160315
  Receipt Date: 20160315
  Transmission Date: 20160526
  Serious: Yes (Other)
  Sender: FDA-Public Use
  Company Number: None

PATIENT
  Age: 56 Year
  Sex: Female
  Weight: 90.72 kg

DRUGS (3)
  1. SYMBICORT [Suspect]
     Active Substance: BUDESONIDE\FORMOTEROL FUMARATE DIHYDRATE
     Indication: ASTHMA
     Dosage: 2 PUFFS DAILY  ONCE DAILY  INHALATION
     Route: 055
     Dates: start: 20160204, end: 20160312
  2. BLOOD PRESSURE MEDS [Concomitant]
  3. THYROID MEDS [Concomitant]

REACTIONS (4)
  - Arthralgia [None]
  - Rash [None]
  - Urticaria [None]
  - Pain in extremity [None]

NARRATIVE: CASE EVENT DATE: 20160301
